FAERS Safety Report 11388905 (Version 1)
Quarter: 2015Q3

REPORT INFORMATION
  Report Type: Spontaneous
  Country: US (occurrence: US)
  Receive Date: 20150811
  Receipt Date: 20150811
  Transmission Date: 20151125
  Serious: Yes (Congenital Anomaly, Other)
  Sender: FDA-Public Use
  Company Number: US-APOTEX-2015AP008603

PATIENT
  Age: 0 Day
  Sex: Male
  Weight: 1.8 kg

DRUGS (1)
  1. PAXIL [Suspect]
     Active Substance: PAROXETINE HYDROCHLORIDE
     Indication: PRODUCT USED FOR UNKNOWN INDICATION
     Route: 064

REACTIONS (7)
  - Foetal exposure during pregnancy [Unknown]
  - Pulmonary valve stenosis [Unknown]
  - Malocclusion [Unknown]
  - Talipes [Unknown]
  - Premature baby [Unknown]
  - Cleft lip and palate [Unknown]
  - Atrial septal defect [Unknown]

NARRATIVE: CASE EVENT DATE: 19990725
